FAERS Safety Report 9403703 (Version 1)
Quarter: 2013Q3

REPORT INFORMATION
  Report Type: Spontaneous
  Country: US (occurrence: None)
  Receive Date: 20130715
  Receipt Date: 20130715
  Transmission Date: 20140515
  Serious: Yes (Hospitalization)
  Sender: FDA-Public Use
  Company Number: None

PATIENT
  Age: 56 Year
  Sex: Male
  Weight: 102.2 kg

DRUGS (3)
  1. ALFA 2 INTERFERON 2B (INTRON-A) [Suspect]
  2. NIACIN [Concomitant]
  3. PRAVASTATIN [Concomitant]

REACTIONS (1)
  - Blood creatine phosphokinase increased [None]
